FAERS Safety Report 15157280 (Version 1)
Quarter: 2018Q3

REPORT INFORMATION
  Report Type: Spontaneous
  Country: US (occurrence: US)
  Receive Date: 20180718
  Receipt Date: 20180718
  Transmission Date: 20181010
  Serious: No
  Sender: FDA-Public Use
  Company Number: US-CIPLA LTD.-2017US25190

PATIENT

DRUGS (1)
  1. WARFARIN [Suspect]
     Active Substance: WARFARIN
     Indication: PRODUCT USED FOR UNKNOWN INDICATION
     Dosage: 5 MG, ONE TABLET THREE DAYS A WEEK AND ONE AND A HALF FOUR DAYS A WEEK
     Route: 048
     Dates: start: 201601

REACTIONS (2)
  - International normalised ratio decreased [Not Recovered/Not Resolved]
  - Drug ineffective [Not Recovered/Not Resolved]
